FAERS Safety Report 8217926-3 (Version None)
Quarter: 2012Q1

REPORT INFORMATION
  Report Type: 
  Country: None (occurrence: None)
  Receive Date: 20120314
  Receipt Date: 20120302
  Transmission Date: 20120608
  Serious: Yes (Death, Life-Threatening, Hospitalization)
  Sender: FDA-Public Use
  Company Number: 2012P1008905

PATIENT
  Age: 3 Year
  Sex: Male
  Weight: 18.1 kg

DRUGS (12)
  1. CITRULLINE POWDER [Concomitant]
  2. RACOL-NF LIQUID FOR ENTERAL USE [Concomitant]
  3. BUPHENYL [Suspect]
     Indication: AMINO ACID METABOLISM DISORDER
     Dosage: 9000 MG;QD;PO ; 300 MG;QD;PO
     Route: 048
     Dates: start: 20111013, end: 20111027
  4. BUPHENYL [Suspect]
     Indication: AMINO ACID METABOLISM DISORDER
     Dosage: 9000 MG;QD;PO ; 300 MG;QD;PO
     Route: 048
     Dates: start: 20110922, end: 20111012
  5. AMIYU GRANULE [Concomitant]
  6. BENZALIN FINE GRANULES 1% [Concomitant]
  7. SOLITA-T GRANULES NO 3 [Concomitant]
  8. ELENTAL [Concomitant]
  9. MONILAC SYRUP [Concomitant]
  10. L-CARTIN TABLETS [Concomitant]
  11. SODIUM BENZOATE POWDER [Concomitant]
  12. GLYCERIN ENEMA 50% [Concomitant]

REACTIONS (25)
  - TACHYCARDIA [None]
  - CONDITION AGGRAVATED [None]
  - BLOOD CREATINE PHOSPHOKINASE INCREASED [None]
  - BLOOD LACTIC ACID INCREASED [None]
  - HYPOTENSION [None]
  - CARDIAC FAILURE [None]
  - HYPOPROTEINAEMIA [None]
  - CONSTIPATION [None]
  - ALOPECIA [None]
  - HAEMOCONCENTRATION [None]
  - USE OF ACCESSORY RESPIRATORY MUSCLES [None]
  - LIVER DISORDER [None]
  - ARRHYTHMIA [None]
  - MULTI-ORGAN FAILURE [None]
  - HEPATIC FAILURE [None]
  - DRY SKIN [None]
  - OXYGEN SATURATION DECREASED [None]
  - RESPIRATORY ARREST [None]
  - DIALYSIS [None]
  - AMINO ACID METABOLISM DISORDER [None]
  - BLOOD CREATININE DECREASED [None]
  - URINE OUTPUT DECREASED [None]
  - TACHYPNOEA [None]
  - METABOLIC ACIDOSIS [None]
  - MOOD ALTERED [None]
